FAERS Safety Report 20687782 (Version 1)
Quarter: 2022Q2

REPORT INFORMATION
  Report Type: Spontaneous
  Country: JP (occurrence: JP)
  Receive Date: 20220408
  Receipt Date: 20220408
  Transmission Date: 20220721
  Serious: Yes (Hospitalization)
  Sender: FDA-Public Use
  Company Number: JP-ABBVIE-22K-087-4312648-00

PATIENT
  Age: 85 Year
  Sex: Female

DRUGS (1)
  1. LUVOX [Suspect]
     Active Substance: FLUVOXAMINE MALEATE
     Indication: Social anxiety disorder
     Route: 048

REACTIONS (2)
  - Radius fracture [Unknown]
  - Fall [Unknown]
